FAERS Safety Report 13248502 (Version 1)
Quarter: 2017Q1

REPORT INFORMATION
  Report Type: Spontaneous
  Country: US (occurrence: US)
  Receive Date: 20170218
  Receipt Date: 20170218
  Transmission Date: 20170428
  Serious: No
  Sender: FDA-Public Use
  Company Number: US-ALLERGAN-1657910US

PATIENT
  Age: 68 Year
  Sex: Female
  Weight: 68.27 kg

DRUGS (8)
  1. FML [Suspect]
     Active Substance: FLUOROMETHOLONE
     Indication: EYE INFLAMMATION
  2. OXYBUTIN [Concomitant]
     Active Substance: OXYBUTYNIN
     Indication: CYSTITIS INTERSTITIAL
     Dosage: UNK
  3. VITAMINS [Concomitant]
     Active Substance: VITAMINS
     Indication: BLOOD MAGNESIUM DECREASED
     Dosage: UNK
  4. FML [Suspect]
     Active Substance: FLUOROMETHOLONE
     Indication: DRY EYE
     Dosage: 2 GTT, BID
     Route: 047
     Dates: start: 20160519, end: 20160522
  5. RESTASIS [Suspect]
     Active Substance: CYCLOSPORINE
     Indication: DRY EYE
     Dosage: 2 GTT, BID
     Route: 047
     Dates: start: 20160519, end: 20160522
  6. ESTROGENS [Concomitant]
     Active Substance: ESTROGENS
     Indication: PRODUCT USED FOR UNKNOWN INDICATION
     Dosage: UNK
  7. LISINOPRIL. [Concomitant]
     Active Substance: LISINOPRIL
     Indication: HYPERTENSION
     Dosage: 40 MG, UNK
  8. K TAB [Concomitant]
     Indication: BLOOD POTASSIUM DECREASED
     Dosage: UNK

REACTIONS (7)
  - Eye pain [Recovered/Resolved]
  - Lacrimation increased [Recovered/Resolved]
  - Off label use [Unknown]
  - Eye irritation [Recovered/Resolved]
  - Asthenopia [Recovered/Resolved]
  - Vision blurred [Recovered/Resolved]
  - Foreign body sensation in eyes [Recovered/Resolved]

NARRATIVE: CASE EVENT DATE: 20160519
